FAERS Safety Report 9908544 (Version 1)
Quarter: 2014Q1

REPORT INFORMATION
  Report Type: Report from Study
  Country: US (occurrence: US)
  Receive Date: 20140219
  Receipt Date: 20140219
  Transmission Date: 20141002
  Serious: Yes (Other)
  Sender: FDA-Public Use
  Company Number: US-ROCHE-1348666

PATIENT
  Sex: Female

DRUGS (1)
  1. AVASTIN [Suspect]
     Indication: DIABETIC RETINAL OEDEMA
     Route: 050

REACTIONS (5)
  - Diabetic retinal oedema [Unknown]
  - Metamorphopsia [Unknown]
  - Visual acuity reduced [Unknown]
  - Off label use [Unknown]
  - Drug ineffective [Unknown]
